FAERS Safety Report 8001844 (Version 3)
Quarter: 2013Q4

REPORT INFORMATION
  Report Type: Report from Study
  Country: US (occurrence: US)
  Receive Date: 20110622
  Receipt Date: 20131226
  Transmission Date: 20140711
  Serious: Yes (Death, Hospitalization)
  Sender: FDA-Public Use
  Company Number: US-ACTELION-A-US2011-50385

PATIENT
  Age: 70 Year
  Sex: Female

DRUGS (2)
  1. TRACLEER [Suspect]
     Indication: PULMONARY HYPERTENSION
     Dosage: UNK
     Route: 048
     Dates: start: 20080404, end: 20110608
  2. REVATIO [Concomitant]

REACTIONS (4)
  - Ileus [Fatal]
  - Pulmonary hypertension [Fatal]
  - Renal failure chronic [Fatal]
  - Respiratory failure [Fatal]
